FAERS Safety Report 7204901-0 (Version None)
Quarter: 2010Q4

REPORT INFORMATION
  Report Type: 
  Country: None (occurrence: None)
  Receive Date: 20101230
  Receipt Date: 20101222
  Transmission Date: 20110411
  Serious: Yes (Life-Threatening, Hospitalization, Other)
  Sender: FDA-Public Use
  Company Number: US-PURDUE-USA-2010-0056103

PATIENT
  Sex: Female

DRUGS (2)
  1. OXYCONTIN [Suspect]
     Indication: PAIN
     Dosage: 80 MG, QID
  2. ANALGESICS [Concomitant]
     Indication: PRODUCT USED FOR UNKNOWN INDICATION

REACTIONS (6)
  - DRUG PRESCRIBING ERROR [None]
  - LOSS OF CONSCIOUSNESS [None]
  - RENAL FAILURE [None]
  - RESUSCITATION [None]
  - UNEVALUABLE EVENT [None]
  - VOMITING [None]
